FAERS Safety Report 10783435 (Version 2)
Quarter: 2015Q3

REPORT INFORMATION
  Report Type: Spontaneous
  Country: US (occurrence: US)
  Receive Date: 20150210
  Receipt Date: 20150810
  Transmission Date: 20151125
  Serious: Yes (Other)
  Sender: FDA-Public Use
  Company Number: US-PFIZER INC-2015053243

PATIENT
  Age: 31 Year
  Sex: Female
  Weight: 62 kg

DRUGS (18)
  1. TRILEPTAL [Concomitant]
     Active Substance: OXCARBAZEPINE
     Dosage: UNK
     Dates: start: 2007
  2. FELBATOL [Concomitant]
     Active Substance: FELBAMATE
     Indication: EPILEPSY
     Dosage: 2700 MG, DAILY
     Dates: start: 2006
  3. TOPAMAX [Concomitant]
     Active Substance: TOPIRAMATE
     Dosage: UNK
     Dates: start: 2006
  4. KLONOPIN [Concomitant]
     Active Substance: CLONAZEPAM
     Indication: ANXIETY
     Dosage: 2 MG, DAILY
     Route: 048
     Dates: start: 2006
  5. VERAPAMIL [Concomitant]
     Active Substance: VERAPAMIL HYDROCHLORIDE
     Dosage: UNK
     Dates: start: 2014
  6. EFFEXOR XR [Suspect]
     Active Substance: VENLAFAXINE HYDROCHLORIDE
     Indication: DEPRESSION
     Dosage: 150 MG, 1X/DAY
     Dates: start: 2008
  7. LAMICTAL [Concomitant]
     Active Substance: LAMOTRIGINE
     Indication: SEIZURE
     Dosage: 100 MG, 2X/DAY
     Route: 048
     Dates: start: 2015
  8. TOPAMAX [Concomitant]
     Active Substance: TOPIRAMATE
     Indication: SEIZURE
     Dosage: UNK
     Dates: start: 2005, end: 2006
  9. TRILEPTAL [Concomitant]
     Active Substance: OXCARBAZEPINE
     Indication: EPILEPSY
     Dosage: UNK
     Dates: start: 2006, end: 2006
  10. VIMPAT [Concomitant]
     Active Substance: LACOSAMIDE
     Dosage: 100 MG, 2X/DAY
     Dates: start: 2013, end: 20150128
  11. NORTRIPTYLINE [Concomitant]
     Active Substance: NORTRIPTYLINE
     Indication: MIGRAINE
     Dosage: 10 MG, 2X/DAY
     Dates: start: 201403
  12. EFFEXOR XR [Suspect]
     Active Substance: VENLAFAXINE HYDROCHLORIDE
     Indication: ANXIETY
  13. KEPPRA [Concomitant]
     Active Substance: LEVETIRACETAM
     Indication: SEIZURE
     Dosage: 1200 MG, DAILY
     Route: 048
     Dates: start: 2000
  14. VIMPAT [Concomitant]
     Active Substance: LACOSAMIDE
     Dosage: 150 MG, 2X/DAY
     Dates: start: 20150129
  15. PHENOBARBITAL. [Concomitant]
     Active Substance: PHENOBARBITAL
     Indication: EPILEPSY
     Dosage: 48.6 MG, DAILY (AT NIGHT)
     Route: 048
     Dates: start: 19941006
  16. VERAPAMIL [Concomitant]
     Active Substance: VERAPAMIL HYDROCHLORIDE
     Indication: MIGRAINE
     Dosage: 100 MG, 1X/DAY
     Dates: start: 201312, end: 201403
  17. PHENOBARBITAL. [Concomitant]
     Active Substance: PHENOBARBITAL
     Dosage: 140 MG OR 150 MG, UNK
     Route: 048
     Dates: start: 2004
  18. PHENOBARBITAL. [Concomitant]
     Active Substance: PHENOBARBITAL
     Dosage: 120 MG, UNK
     Route: 048

REACTIONS (2)
  - Cerebral disorder [Not Recovered/Not Resolved]
  - Seizure [Not Recovered/Not Resolved]

NARRATIVE: CASE EVENT DATE: 2008
